FAERS Safety Report 9238392 (Version 1)
Quarter: 2013Q2

REPORT INFORMATION
  Report Type: Spontaneous
  Country: US (occurrence: None)
  Receive Date: 20130417
  Receipt Date: 20130417
  Transmission Date: 20140414
  Serious: No
  Sender: FDA-Public Use
  Company Number: None

PATIENT
  Age: 48 Year
  Sex: Female

DRUGS (1)
  1. PEGASYS 180MCG GENENTECH [Suspect]
     Indication: HEPATITIS C
     Dates: start: 20130323

REACTIONS (2)
  - Pyrexia [None]
  - Pain in extremity [None]
